FAERS Safety Report 5417519-7 (Version None)
Quarter: 2007Q3

REPORT INFORMATION
  Report Type: 
  Country: None (occurrence: None)
  Receive Date: 20070816
  Receipt Date: 20070813
  Transmission Date: 20080115
  Serious: Yes (Hospitalization)
  Sender: FDA-Public Use
  Company Number: CA-MERCK-0708CAN00056

PATIENT
  Age: 91 Year
  Sex: Male

DRUGS (7)
  1. ZETIA [Suspect]
     Indication: BLOOD CHOLESTEROL
     Route: 048
     Dates: start: 20050101
  2. AMLODIPINE BESYLATE [Concomitant]
     Route: 065
  3. TAMSULOSIN HYDROCHLORIDE [Concomitant]
     Route: 065
  4. HYDROCHLOROTHIAZIDE AND IRBESARTAN [Concomitant]
     Route: 065
  5. WARFARIN [Concomitant]
     Route: 065
     Dates: start: 19970101, end: 20070101
  6. WARFARIN [Concomitant]
     Route: 065
     Dates: start: 20070101
  7. [THERAPY UNSPECIFIED] [Concomitant]
     Route: 065

REACTIONS (2)
  - DYSSTASIA [None]
  - GLAUCOMA [None]
